FAERS Safety Report 25785961 (Version 1)
Quarter: 2025Q3

REPORT INFORMATION
  Report Type: Spontaneous
  Country: TW (occurrence: TW)
  Receive Date: 20250910
  Receipt Date: 20250910
  Transmission Date: 20251020
  Serious: Yes (Hospitalization)
  Sender: BAXTER
  Company Number: TW-BAXTER-2025BAX020667

PATIENT
  Age: 69 Year
  Sex: Female
  Weight: 48.5 kg

DRUGS (4)
  1. CYCLOPHOSPHAMIDE [Suspect]
     Active Substance: CYCLOPHOSPHAMIDE
     Indication: Breast cancer stage II
     Route: 065
     Dates: start: 20250408, end: 20250520
  2. DOXORUBICIN HYDROCHLORIDE [Suspect]
     Active Substance: DOXORUBICIN HYDROCHLORIDE
     Indication: Breast cancer stage II
     Route: 065
     Dates: start: 20250408, end: 20250520
  3. PROPAFENONE [Concomitant]
     Active Substance: PROPAFENONE
     Dosage: 150 MG, BID
     Route: 065
     Dates: end: 20250630
  4. BENSERAZIDE HYDROCHLORIDE\LEVODOPA [Concomitant]
     Active Substance: BENSERAZIDE HYDROCHLORIDE\LEVODOPA
     Dosage: 125 MG, BID
     Route: 065
     Dates: end: 20250630

REACTIONS (6)
  - Hepatitis B [Recovering/Resolving]
  - Chromaturia [Unknown]
  - Productive cough [Unknown]
  - Palpitations [Unknown]
  - Decreased appetite [Unknown]
  - Abdominal pain [Unknown]

NARRATIVE: CASE EVENT DATE: 20250624
